FAERS Safety Report 24366833 (Version 1)
Quarter: 2024Q3

REPORT INFORMATION
  Report Type: Spontaneous
  Country: US (occurrence: None)
  Receive Date: 20240926
  Receipt Date: 20240926
  Transmission Date: 20241017
  Serious: Yes (Hospitalization)
  Sender: Public
  Company Number: None

PATIENT
  Sex: Male

DRUGS (3)
  1. CAPECITABINE [Suspect]
     Active Substance: CAPECITABINE
     Indication: Squamous cell carcinoma of skin
     Route: 048
     Dates: start: 202307
  2. TACROLIMUS (BIOCIN) [Concomitant]
  3. SIROLIMUS [Concomitant]

REACTIONS (1)
  - Pulmonary thrombosis [None]
